FAERS Safety Report 8405925-8 (Version None)
Quarter: 2012Q2

REPORT INFORMATION
  Report Type: 
  Country: None (occurrence: None)
  Receive Date: 20120604
  Receipt Date: 20120531
  Transmission Date: 20120825
  Serious: No
  Sender: FDA-Public Use
  Company Number: JP-JNJFOC-20120600932

PATIENT

DRUGS (2)
  1. FENTANYL-100 [Suspect]
     Indication: CANCER PAIN
     Route: 062
  2. OXYCODONE HYDROCHLORIDE [Concomitant]
     Route: 048

REACTIONS (1)
  - DRUG PRESCRIBING ERROR [None]
